FAERS Safety Report 7178245-X (Version None)
Quarter: 2010Q4

REPORT INFORMATION
  Report Type: 
  Country: None (occurrence: None)
  Receive Date: 20101220
  Receipt Date: 20101213
  Transmission Date: 20110411
  Serious: Yes (Hospitalization)
  Sender: FDA-Public Use
  Company Number: JP-ROCHE-629362

PATIENT
  Sex: Male
  Weight: 51 kg

DRUGS (70)
  1. TOCILIZUMAB [Suspect]
     Indication: JUVENILE ARTHRITIS
     Route: 041
     Dates: start: 20080606, end: 20080613
  2. TOCILIZUMAB [Suspect]
     Route: 041
     Dates: start: 20080625, end: 20080625
  3. TOCILIZUMAB [Suspect]
     Route: 041
     Dates: start: 20080709, end: 20080709
  4. TOCILIZUMAB [Suspect]
     Route: 041
     Dates: start: 20080723, end: 20080723
  5. TOCILIZUMAB [Suspect]
     Route: 041
     Dates: start: 20080806, end: 20080820
  6. TOCILIZUMAB [Suspect]
     Route: 041
     Dates: start: 20080903, end: 20080903
  7. TOCILIZUMAB [Suspect]
     Route: 041
     Dates: start: 20080917, end: 20081001
  8. TOCILIZUMAB [Suspect]
     Route: 041
     Dates: start: 20081015, end: 20081015
  9. TOCILIZUMAB [Suspect]
     Route: 041
     Dates: start: 20081029, end: 20081029
  10. TOCILIZUMAB [Suspect]
     Route: 041
     Dates: start: 20081112, end: 20081112
  11. TOCILIZUMAB [Suspect]
     Route: 041
     Dates: start: 20081126, end: 20081126
  12. TOCILIZUMAB [Suspect]
     Route: 041
     Dates: start: 20081210, end: 20090107
  13. TOCILIZUMAB [Suspect]
     Route: 041
     Dates: start: 20090121, end: 20091013
  14. TOCILIZUMAB [Suspect]
     Route: 041
     Dates: start: 20091027, end: 20091027
  15. TOCILIZUMAB [Suspect]
     Route: 041
     Dates: start: 20091125, end: 20091125
  16. TOCILIZUMAB [Suspect]
     Route: 041
     Dates: start: 20091209, end: 20091209
  17. TOCILIZUMAB [Suspect]
     Route: 041
     Dates: start: 20091221, end: 20091221
  18. TOCILIZUMAB [Suspect]
     Route: 041
     Dates: start: 20100106, end: 20100106
  19. TOCILIZUMAB [Suspect]
     Route: 041
     Dates: start: 20100120, end: 20100331
  20. TOCILIZUMAB [Suspect]
     Route: 041
     Dates: start: 20100419, end: 20100526
  21. TOCILIZUMAB [Suspect]
     Route: 041
     Dates: start: 20100818, end: 20100915
  22. TOCILIZUMAB [Suspect]
     Route: 041
     Dates: start: 20101027, end: 20101124
  23. PREDNISOLONE [Concomitant]
     Dosage: FORM: PERORAL AGENT
     Route: 048
     Dates: start: 20080109, end: 20080121
  24. PREDNISOLONE [Concomitant]
     Dosage: FORM: PERORAL AGENT
     Route: 048
     Dates: start: 20080122, end: 20080314
  25. PREDNISOLONE [Concomitant]
     Route: 048
     Dates: start: 20080315, end: 20080402
  26. PREDNISOLONE [Concomitant]
     Route: 048
     Dates: start: 20080403, end: 20080408
  27. PREDNISOLONE [Concomitant]
     Dosage: FORM: ORAL FORMULATION (NOS)
     Route: 048
     Dates: start: 20080413, end: 20080515
  28. PREDNISOLONE [Concomitant]
     Route: 048
     Dates: start: 20080516, end: 20080708
  29. PREDNISOLONE [Concomitant]
     Route: 048
     Dates: start: 20080709, end: 20080723
  30. PREDNISOLONE [Concomitant]
     Route: 048
     Dates: start: 20080709, end: 20080805
  31. PREDNISOLONE [Concomitant]
     Route: 048
     Dates: start: 20080806, end: 20080903
  32. PREDNISOLONE [Concomitant]
     Route: 048
     Dates: start: 20080904, end: 20081001
  33. PREDNISOLONE [Concomitant]
     Route: 048
     Dates: start: 20081002, end: 20081028
  34. PREDNISOLONE [Concomitant]
     Route: 048
     Dates: start: 20081029, end: 20081116
  35. PREDNISOLONE [Concomitant]
     Route: 048
     Dates: start: 20081117, end: 20081211
  36. PREDNISOLONE [Concomitant]
     Route: 048
     Dates: start: 20081218, end: 20081223
  37. PREDNISOLONE [Concomitant]
     Route: 048
     Dates: start: 20081224, end: 20090106
  38. PREDNISOLONE [Concomitant]
     Route: 048
     Dates: start: 20090107, end: 20090120
  39. PREDNISOLONE [Concomitant]
     Route: 048
     Dates: start: 20090121, end: 20090217
  40. PREDNISOLONE [Concomitant]
     Route: 048
     Dates: start: 20090218, end: 20090317
  41. PREDNISOLONE [Concomitant]
     Route: 048
     Dates: start: 20090318, end: 20090414
  42. PREDNISOLONE [Concomitant]
     Route: 048
     Dates: start: 20090415, end: 20090511
  43. PREDNISOLONE [Concomitant]
     Route: 048
     Dates: start: 20090512, end: 20090608
  44. PREDNISOLONE [Concomitant]
     Route: 048
     Dates: start: 20090609, end: 20090706
  45. PREDNISOLONE [Concomitant]
     Route: 048
     Dates: start: 20090707, end: 20090803
  46. PREDNISOLONE [Concomitant]
     Route: 048
     Dates: start: 20090804, end: 20090928
  47. PREDNISOLONE [Concomitant]
     Route: 048
     Dates: start: 20091125, end: 20091208
  48. PREDNISOLONE [Concomitant]
     Route: 048
     Dates: start: 20091209, end: 20091220
  49. PREDNISOLONE [Concomitant]
     Route: 048
     Dates: start: 20091221, end: 20100119
  50. PREDNISOLONE [Concomitant]
     Route: 048
     Dates: start: 20100120, end: 20100216
  51. PREDNISOLONE [Concomitant]
     Route: 048
     Dates: start: 20100217, end: 20100418
  52. PREDNISOLONE [Concomitant]
     Route: 048
     Dates: start: 20100419, end: 20101026
  53. PREDNISOLONE [Concomitant]
     Route: 048
     Dates: start: 20101027
  54. NAIXAN [Concomitant]
     Route: 048
     Dates: end: 20080708
  55. BONALON [Concomitant]
     Route: 048
     Dates: end: 20080723
  56. XALATAN [Concomitant]
     Route: 047
     Dates: end: 20080723
  57. HYALEIN [Concomitant]
     Route: 047
     Dates: end: 20080723
  58. MUCOSTA [Concomitant]
     Dosage: FORM: ORAL FORMULATION (NOS)
     Route: 048
     Dates: end: 20080708
  59. ACYCLOVIR [Concomitant]
     Dosage: FORM: ORAL FORMULATION (NOS)
     Route: 048
     Dates: end: 20080708
  60. GASTER [Concomitant]
     Dosage: FORM: ORAL FORMULATION (NOS)
     Route: 048
     Dates: start: 20080709
  61. PROGRAF [Concomitant]
     Dosage: NOTE: 2 TO 5 MG
     Route: 048
     Dates: start: 20071205, end: 20080602
  62. PROGRAF [Concomitant]
     Route: 048
     Dates: start: 20100819, end: 20101026
  63. PROGRAF [Concomitant]
     Route: 048
     Dates: start: 20101027
  64. NAUZELIN [Concomitant]
     Route: 048
     Dates: end: 20100818
  65. ONON [Concomitant]
     Route: 048
     Dates: end: 20100106
  66. ALLEGRA [Concomitant]
     Dosage: FORM: PERORAL AGENT
     Route: 048
     Dates: end: 20100120
  67. RHEUMATREX [Concomitant]
     Route: 048
     Dates: end: 20091208
  68. RHEUMATREX [Concomitant]
     Route: 048
     Dates: start: 20091209, end: 20100818
  69. PREDONINE [Concomitant]
     Dosage: FORM: INTRAVENOUS(NOT OTHRWISE SPECIFIED)
     Route: 042
     Dates: start: 20080409, end: 20080412
  70. FAMOTIDINE [Concomitant]
     Dosage: PREORAL AGENT
     Route: 048

REACTIONS (7)
  - ASTHMA [None]
  - CHEST DISCOMFORT [None]
  - CHEST PAIN [None]
  - CHILLS [None]
  - JUVENILE ARTHRITIS [None]
  - UPPER RESPIRATORY TRACT INFLAMMATION [None]
  - VIRAL INFECTION [None]
